FAERS Safety Report 10595118 (Version 5)
Quarter: 2015Q1

REPORT INFORMATION
  Report Type: Spontaneous
  Country: JP (occurrence: JP)
  Receive Date: 20141120
  Receipt Date: 20150128
  Transmission Date: 20150720
  Serious: Yes (Life-Threatening, Hospitalization, Other)
  Sender: FDA-Public Use
  Company Number: JP-AMGEN-JPNSP2014089321

PATIENT
  Age: 80 Year
  Sex: Female
  Weight: 39 kg

DRUGS (7)
  1. METHOTREXATE SODIUM. [Concomitant]
     Active Substance: METHOTREXATE SODIUM
     Dosage: 8 MG, WEEKLY
     Route: 048
     Dates: start: 20110302, end: 20141024
  2. ENBREL [Suspect]
     Active Substance: ETANERCEPT
     Indication: RHEUMATOID ARTHRITIS
     Dosage: 25 MG, UNK
     Route: 058
     Dates: start: 20130425, end: 201410
  3. ARICEPT [Concomitant]
     Active Substance: DONEPEZIL HYDROCHLORIDE
     Indication: DEMENTIA
     Dosage: UNK
     Dates: start: 20110330, end: 20141028
  4. MEMARY [Concomitant]
     Active Substance: MEMANTINE HYDROCHLORIDE
     Indication: DEMENTIA
     Dosage: UNK
     Dates: start: 20120930
  5. CELECOX [Concomitant]
     Active Substance: CELECOXIB
     Indication: RHEUMATOID ARTHRITIS
     Dosage: 100 MG ONCE DAILY (AFTER THE MORNING MEAL)
     Route: 048
     Dates: start: 20110302
  6. BAKTAR [Concomitant]
     Active Substance: SULFAMETHOXAZOLE\TRIMETHOPRIM
     Dosage: 1 TABLET ONCE DAILY (AFTER THE MORNING MEAL)
     Route: 048
     Dates: start: 201305, end: 20141024
  7. NEOISCOTIN [Suspect]
     Active Substance: METHANIAZIDE
     Indication: PRODUCT USED FOR UNKNOWN INDICATION
     Dosage: 200 MG, DAILY (AFTER THE MORNING MEAL)
     Route: 048
     Dates: start: 201305, end: 20141024

REACTIONS (4)
  - Disseminated intravascular coagulation [Recovered/Resolved]
  - Mallory-Weiss syndrome [Recovered/Resolved]
  - Neuropsychiatric lupus [Recovering/Resolving]
  - Systemic lupus erythematosus [Recovered/Resolved]

NARRATIVE: CASE EVENT DATE: 20141024
